FAERS Safety Report 8422366-8 (Version None)
Quarter: 2012Q2

REPORT INFORMATION
  Report Type: 
  Country: None (occurrence: None)
  Receive Date: 20120323
  Receipt Date: 20110805
  Transmission Date: 20120825
  Serious: Yes (Hospitalization)
  Sender: FDA-Public Use
  Company Number: 163-21880-11080814

PATIENT
  Age: 66 Year
  Sex: Male

DRUGS (8)
  1. ZOLPIDEM TARTRATE [Concomitant]
  2. HYDROCODONE/ACETAMINOPHEN (REMEDEINE) [Concomitant]
  3. AMLODIPINE [Concomitant]
  4. GUAIFENESIN [Concomitant]
  5. MUCINEX [Concomitant]
  6. OMEPRAZOLE [Concomitant]
  7. REVLIMID [Suspect]
     Indication: MULTIPLE MYELOMA
     Dosage: 25 MG, DAILY X 21 DAYS, PO
     Route: 048
     Dates: start: 20110406
  8. ASPIRIN [Concomitant]

REACTIONS (2)
  - PLATELET COUNT DECREASED [None]
  - WHITE BLOOD CELL COUNT DECREASED [None]
